FAERS Safety Report 18174226 (Version 1)
Quarter: 2020Q3

REPORT INFORMATION
  Report Type: Spontaneous
  Country: MP (occurrence: MP)
  Receive Date: 20200820
  Receipt Date: 20200820
  Transmission Date: 20201103
  Serious: Yes (Other)
  Sender: FDA-Public Use
  Company Number: None

PATIENT
  Age: 64 Year
  Sex: Male
  Weight: 86.5 kg

DRUGS (3)
  1. PERJETA [Concomitant]
     Active Substance: PERTUZUMAB
     Dates: start: 20200814, end: 20200814
  2. HERCEPTIN [Suspect]
     Active Substance: TRASTUZUMAB
     Indication: BREAST CANCER
     Dosage: ?          OTHER FREQUENCY:Q 21 DAYS;?
     Route: 040
     Dates: start: 20200814, end: 20200814
  3. HERCEPTIN [Suspect]
     Active Substance: TRASTUZUMAB
     Indication: BREAST CANCER
     Dosage: ?          OTHER FREQUENCY:Q 21 DAYS;?
     Route: 040
     Dates: start: 20200814, end: 20200814

REACTIONS (3)
  - Chills [None]
  - Feeling cold [None]
  - Infusion related reaction [None]

NARRATIVE: CASE EVENT DATE: 20200812
